FAERS Safety Report 19762172 (Version 1)
Quarter: 2021Q3

REPORT INFORMATION
  Report Type: Spontaneous
  Country: CA (occurrence: CA)
  Receive Date: 20210827
  Receipt Date: 20210827
  Transmission Date: 20211014
  Serious: Yes (Hospitalization)
  Sender: FDA-Public Use
  Company Number: CA-TAKEDA-2021TUS044174

PATIENT
  Age: 62 Year
  Sex: Female
  Weight: 74 kg

DRUGS (6)
  1. C1 INHIBITOR (HUMAN) [Suspect]
     Active Substance: HUMAN C1-ESTERASE INHIBITOR
     Indication: HEREDITARY ANGIOEDEMA
     Dosage: 3000 INTERNATIONAL UNIT, 2/WEEK
     Route: 042
  2. C1 INHIBITOR (HUMAN) [Suspect]
     Active Substance: HUMAN C1-ESTERASE INHIBITOR
     Indication: HEREDITARY ANGIOEDEMA
     Dosage: 3000 INTERNATIONAL UNIT, 2/WEEK
     Route: 042
  3. C1 INHIBITOR (HUMAN) [Suspect]
     Active Substance: HUMAN C1-ESTERASE INHIBITOR
     Indication: PROPHYLAXIS
     Dosage: 5000 INTERNATIONAL UNIT, 2/WEEK
     Route: 065
  4. C1 INHIBITOR (HUMAN) [Suspect]
     Active Substance: HUMAN C1-ESTERASE INHIBITOR
     Indication: HEREDITARY ANGIOEDEMA
     Dosage: 3000 INTERNATIONAL UNIT, 2/WEEK
     Route: 042
  5. C1 INHIBITOR (HUMAN) [Suspect]
     Active Substance: HUMAN C1-ESTERASE INHIBITOR
     Indication: PROPHYLAXIS
     Dosage: 5000 INTERNATIONAL UNIT, 2/WEEK
     Route: 065
  6. C1 INHIBITOR (HUMAN) [Suspect]
     Active Substance: HUMAN C1-ESTERASE INHIBITOR
     Indication: PROPHYLAXIS
     Dosage: 5000 INTERNATIONAL UNIT, 2/WEEK
     Route: 065

REACTIONS (5)
  - Swollen tongue [Unknown]
  - Off label use [Unknown]
  - Dyspnoea [Unknown]
  - Hereditary angioedema [Unknown]
  - Drug ineffective [Unknown]
